FAERS Safety Report 8342933-X (Version None)
Quarter: 2012Q2

REPORT INFORMATION
  Report Type: 
  Country: None (occurrence: None)
  Receive Date: 20120504
  Receipt Date: 20120504
  Transmission Date: 20120825
  Serious: Yes (Other)
  Sender: FDA-Public Use
  Company Number: None

PATIENT
  Sex: Female
  Weight: 105.6 kg

DRUGS (1)
  1. LENALIDOMIDE [Suspect]
     Indication: HODGKIN'S DISEASE
     Dosage: 20MG D1-D12 OF 28 PO
     Route: 048
     Dates: start: 20071004, end: 20110713

REACTIONS (2)
  - HODGKIN'S DISEASE RECURRENT [None]
  - MYELODYSPLASTIC SYNDROME [None]
